FAERS Safety Report 10627164 (Version 3)
Quarter: 2015Q4

REPORT INFORMATION
  Report Type: Spontaneous
  Country: US (occurrence: US)
  Receive Date: 20141204
  Receipt Date: 20151215
  Transmission Date: 20160304
  Serious: Yes (Hospitalization, Disabling, Other)
  Sender: FDA-Public Use
  Company Number: US-GLAXOSMITHKLINE-US2014GSK030450

PATIENT
  Sex: Male

DRUGS (2)
  1. LOVAZA [Suspect]
     Active Substance: OMEGA-3-ACID ETHYL ESTERS
     Indication: BLOOD TRIGLYCERIDES INCREASED
  2. LOVAZA [Suspect]
     Active Substance: OMEGA-3-ACID ETHYL ESTERS
     Indication: BLOOD CHOLESTEROL
     Dosage: 1 G, UNK
     Route: 065
     Dates: start: 2010

REACTIONS (8)
  - Chest pain [Recovered/Resolved]
  - Head injury [Recovered/Resolved with Sequelae]
  - Craniocerebral injury [Unknown]
  - Pancreatitis [Recovered/Resolved]
  - Fall [Unknown]
  - Drug dose omission [Unknown]
  - Gun shot wound [Recovered/Resolved with Sequelae]
  - Disability [Not Recovered/Not Resolved]

NARRATIVE: CASE EVENT DATE: 2012
